FAERS Safety Report 15396112 (Version 13)
Quarter: 2021Q4

REPORT INFORMATION
  Report Type: Report from Study
  Country: CA (occurrence: CA)
  Receive Date: 20180918
  Receipt Date: 20211224
  Transmission Date: 20220304
  Serious: Yes (Hospitalization, Other)
  Sender: FDA-Public Use
  Company Number: PHHY2017CA082290

PATIENT
  Age: 78 Year
  Sex: Male

DRUGS (5)
  1. AFINITOR [Suspect]
     Active Substance: EVEROLIMUS
     Indication: Pancreatic neuroendocrine tumour
     Dosage: 10 MG, QD
     Route: 048
     Dates: start: 20170423
  2. AFINITOR [Suspect]
     Active Substance: EVEROLIMUS
     Dosage: 10 MG, QD
     Route: 048
     Dates: start: 20180905
  3. SANDOSTATIN LAR DEPOT [Suspect]
     Active Substance: OCTREOTIDE ACETATE
     Indication: Pancreatic neuroendocrine tumour
     Dosage: 30 MG, QMO
     Route: 030
     Dates: start: 20100908
  4. SANDOSTATIN LAR DEPOT [Suspect]
     Active Substance: OCTREOTIDE ACETATE
     Dosage: 40 MG, QMO
     Route: 030
     Dates: start: 20100908
  5. SANDOSTATIN LAR DEPOT [Suspect]
     Active Substance: OCTREOTIDE ACETATE
     Dosage: 40 MG, QMO
     Route: 030
     Dates: start: 20140716

REACTIONS (31)
  - Strangulated hernia [Unknown]
  - Haematochezia [Recovering/Resolving]
  - Thrombosis [Unknown]
  - Fall [Unknown]
  - Contusion [Unknown]
  - Mass [Unknown]
  - Pneumonia [Recovering/Resolving]
  - Pyrexia [Unknown]
  - Myelodysplastic syndrome [Unknown]
  - Blood glucose abnormal [Recovering/Resolving]
  - Rectal abscess [Unknown]
  - Weight decreased [Unknown]
  - Blister [Unknown]
  - Tachycardia [Unknown]
  - Lip dry [Unknown]
  - Back pain [Unknown]
  - Oral discomfort [Unknown]
  - Abscess oral [Unknown]
  - Stomatitis [Unknown]
  - Mouth ulceration [Unknown]
  - Oedema peripheral [Not Recovered/Not Resolved]
  - Blood pressure increased [Recovering/Resolving]
  - Erythema [Unknown]
  - Hypertension [Unknown]
  - Blood iron decreased [Unknown]
  - Gout [Unknown]
  - Malaise [Unknown]
  - Anaemia [Unknown]
  - Asthenia [Unknown]
  - Diarrhoea [Unknown]
  - Fatigue [Unknown]

NARRATIVE: CASE EVENT DATE: 20170101
